FAERS Safety Report 19844012 (Version 2)
Quarter: 2021Q3

REPORT INFORMATION
  Report Type: Spontaneous
  Country: JP (occurrence: JP)
  Receive Date: 20210917
  Receipt Date: 20210929
  Transmission Date: 20211014
  Serious: No
  Sender: FDA-Public Use
  Company Number: JP-JNJFOC-20210918817

PATIENT
  Age: 32 Year
  Sex: Female

DRUGS (2)
  1. OPSUMIT [Suspect]
     Active Substance: MACITENTAN
     Indication: PULMONARY HYPERTENSION
     Route: 048
     Dates: start: 20201125
  2. ADCIRCA [Concomitant]
     Active Substance: TADALAFIL
     Indication: PULMONARY HYPERTENSION
     Route: 048
     Dates: start: 20201117

REACTIONS (3)
  - Brain natriuretic peptide increased [Recovered/Resolved]
  - Pleural effusion [Recovered/Resolved]
  - Transvalvular pressure gradient increased [Recovered/Resolved]

NARRATIVE: CASE EVENT DATE: 20201130
